FAERS Safety Report 4487812-3 (Version None)
Quarter: 2004Q4

REPORT INFORMATION
  Report Type: 
  Country: None (occurrence: None)
  Receive Date: 20041026
  Receipt Date: 20041026
  Transmission Date: 20050328
  Serious: Yes (Hospitalization)
  Sender: FDA-Public Use
  Company Number: None

PATIENT
  Age: 69 Year
  Sex: Male
  Weight: 107.5025 kg

DRUGS (2)
  1. CLOFARABINE [Suspect]
     Indication: ACUTE MYELOID LEUKAEMIA
     Dosage: 30 MG/M2 IV Q D X 5 DAYS 70 MG
     Route: 042
  2. CYTARABINE [Suspect]
     Dosage: 100 MG/M2 IV-230 MG CONT X 5 DAYS

REACTIONS (1)
  - PNEUMONIA [None]
